FAERS Safety Report 11448363 (Version 1)
Quarter: 2015Q3

REPORT INFORMATION
  Report Type: Spontaneous
  Country: US (occurrence: US)
  Receive Date: 20150831
  Receipt Date: 20150831
  Transmission Date: 20151125
  Serious: Yes (Death)
  Sender: FDA-Public Use
  Company Number: US-ELI_LILLY_AND_COMPANY-US200905005397

PATIENT
  Age: 39 Year
  Sex: Female
  Weight: 77.1 kg

DRUGS (4)
  1. CYMBALTA [Suspect]
     Active Substance: DULOXETINE HYDROCHLORIDE
     Indication: PAIN
     Dates: start: 200810, end: 20081020
  2. CYMBALTA [Suspect]
     Active Substance: DULOXETINE HYDROCHLORIDE
     Dosage: 60 MG, UNK
     Dates: start: 20081020
  3. OXYCODONE W/PARACETAMOL [Concomitant]
     Active Substance: ACETAMINOPHEN\OXYCODONE HYDROCHLORIDE
     Dosage: 1 D/F, EVERY 6 HRS
     Dates: start: 2008
  4. SOMA [Concomitant]
     Active Substance: CARISOPRODOL
     Indication: PAIN
     Dosage: 350 MG, 4/D
     Dates: start: 2008

REACTIONS (4)
  - Adjustment disorder with depressed mood [Unknown]
  - Stress [Unknown]
  - Aspartate aminotransferase increased [Unknown]
  - Completed suicide [Fatal]

NARRATIVE: CASE EVENT DATE: 20090508
